FAERS Safety Report 23554568 (Version 4)
Quarter: 2024Q3

REPORT INFORMATION
  Report Type: Spontaneous
  Country: US (occurrence: US)
  Receive Date: 20240222
  Receipt Date: 20240718
  Transmission Date: 20241016
  Serious: Yes (Other)
  Sender: UCB
  Company Number: US-UCBSA-2024008410

PATIENT
  Age: 36 Year
  Sex: Male
  Weight: 129.3 kg

DRUGS (20)
  1. FINTEPLA [Suspect]
     Active Substance: FENFLURAMINE
     Indication: Lennox-Gastaut syndrome
     Dosage: 4 MILLILITER, 2X/DAY (BID), 0.49 MILLIGRAM/KILOGRAM/DAY (TOTAL DOSE: 17.6 MG/DAY)
     Route: 048
     Dates: start: 20220902
  2. FINTEPLA [Suspect]
     Active Substance: FENFLURAMINE
     Dosage: 4 MILLILITER, 2X/DAY (BID)
     Route: 048
     Dates: start: 20220919
  3. FINTEPLA [Suspect]
     Active Substance: FENFLURAMINE
     Dosage: 3.5 MILLILITER, 2X/DAY (BID)
     Route: 048
  4. FINTEPLA [Suspect]
     Active Substance: FENFLURAMINE
     Dosage: 3 MILLILITER, 2X/DAY (BID)
     Route: 048
  5. FINTEPLA [Suspect]
     Active Substance: FENFLURAMINE
     Dosage: 2 MILLIGRAM, 2X/DAY (BID)
     Route: 048
  6. FINTEPLA [Suspect]
     Active Substance: FENFLURAMINE
     Dosage: 1.9 MILLILITER, 2X/DAY (BID)
     Dates: end: 20240704
  7. CITRACAL + D3 [Concomitant]
     Indication: Product used for unknown indication
     Dosage: 1200 MILLIGRAM, ONCE DAILY (QD)
     Route: 048
  8. XCOPRI [Concomitant]
     Active Substance: CENOBAMATE
     Indication: Product used for unknown indication
     Dosage: 400 MILLIGRAM, ONCE DAILY (QD)
     Route: 048
  9. ZYRTEC [Concomitant]
     Active Substance: CETIRIZINE HYDROCHLORIDE
     Indication: Product used for unknown indication
     Dosage: 10 MILLIGRAM, ONCE DAILY (QD)
     Route: 048
  10. VITAMIN D3 [Concomitant]
     Active Substance: CHOLECALCIFEROL
     Indication: Product used for unknown indication
     Dosage: 25 MICROGRAM, 2X/DAY (BID)
     Route: 048
  11. CLINDAMYCIN HYDROCHLORIDE [Concomitant]
     Active Substance: CLINDAMYCIN HYDROCHLORIDE
     Indication: Product used for unknown indication
     Dosage: 300 MILLIGRAM, 3X/DAY (TID)
     Route: 048
  12. KLONOPIN [Concomitant]
     Active Substance: CLONAZEPAM
     Indication: Product used for unknown indication
     Dosage: 0.5 (ONE HALF) MILLIGRAM AT BEDTIME
     Route: 048
  13. APTIOM [Concomitant]
     Active Substance: ESLICARBAZEPINE ACETATE
     Indication: Product used for unknown indication
     Dosage: 1 TABLET BY MOUTH AT BEDTIME
     Route: 048
  14. SYNTHROID [Concomitant]
     Active Substance: LEVOTHYROXINE SODIUM
     Indication: Product used for unknown indication
     Dosage: 125 MICROGRAM, ONCE DAILY (QD)
     Route: 048
  15. NAYZILAM [Concomitant]
     Active Substance: MIDAZOLAM
     Indication: Seizure
     Dosage: 0.1 MILLILITER, AS NEEDED (PRN)
     Route: 045
  16. VITAMINS [Concomitant]
     Active Substance: VITAMINS
     Indication: Product used for unknown indication
     Dosage: TAKE 1 (ONE) TABLET BY MOUTH DAILY WITH FOOD
     Route: 048
  17. FYCOMPA [Concomitant]
     Active Substance: PERAMPANEL
     Indication: Product used for unknown indication
     Dosage: TAKE 1 (ONE) TABLET BY MOUTH AT BEDTIME
     Route: 048
  18. BIFIDOBACTERIUM ANIMALIS LACTIS [Concomitant]
     Active Substance: BIFIDOBACTERIUM ANIMALIS LACTIS
     Indication: Product used for unknown indication
     Dosage: TAKE 1 (ONE) CAPSULE BY MOUTH ONCE DAILY
     Route: 048
  19. ZONEGRAN [Concomitant]
     Active Substance: ZONISAMIDE
     Indication: Product used for unknown indication
     Dosage: TAKE 6 (SIX) CAPSULES BY MOUTH AT BEDTIME
     Route: 048
  20. FLONASE SENSIMIST ALLERGY RELIEF [Concomitant]
     Active Substance: FLUTICASONE FUROATE
     Indication: Product used for unknown indication
     Dosage: UNK

REACTIONS (11)
  - Pulmonary arterial pressure increased [Unknown]
  - Pericardial effusion [Unknown]
  - Cardiac valve thickening [Unknown]
  - Seizure [Unknown]
  - Mitral valve incompetence [Unknown]
  - Pulmonary valve incompetence [Unknown]
  - Right ventricular systolic pressure increased [Not Recovered/Not Resolved]
  - Hypertension [Not Recovered/Not Resolved]
  - Dilatation ventricular [Unknown]
  - Echocardiogram abnormal [Recovered/Resolved]
  - Drug ineffective [Unknown]

NARRATIVE: CASE EVENT DATE: 20240214
